FAERS Safety Report 9689442 (Version 2)
Quarter: 2013Q4

REPORT INFORMATION
  Report Type: Spontaneous
  Country: US (occurrence: US)
  Receive Date: 20131114
  Receipt Date: 20131114
  Transmission Date: 20140711
  Serious: No
  Sender: FDA-Public Use
  Company Number: US-ASTRAZENECA-2013SE80374

PATIENT
  Age: 73 Year
  Sex: Female
  Weight: 70.3 kg

DRUGS (2)
  1. CRESTOR [Suspect]
     Indication: BLOOD CHOLESTEROL ABNORMAL
     Route: 048
     Dates: end: 201309
  2. OTHERS (UNSPECIFED) [Concomitant]

REACTIONS (2)
  - Agitation [Unknown]
  - Intentional drug misuse [Unknown]
